FAERS Safety Report 26087038 (Version 1)
Quarter: 2025Q4

REPORT INFORMATION
  Report Type: Spontaneous
  Country: GB (occurrence: GB)
  Receive Date: 20251125
  Receipt Date: 20251125
  Transmission Date: 20260117
  Serious: Yes (Other)
  Sender: RANBAXY
  Company Number: GB-PFIZER INC-PV202500116971

PATIENT
  Age: 2 Year

DRUGS (3)
  1. TEMOZOLOMIDE [Suspect]
     Active Substance: TEMOZOLOMIDE
     Indication: Neuroblastoma
     Dosage: UNK
     Route: 065
  2. BEVACIZUMAB [Suspect]
     Active Substance: BEVACIZUMAB
     Indication: Neuroblastoma
     Dosage: UNK
     Route: 065
  3. IRINOTECAN HYDROCHLORIDE [Suspect]
     Active Substance: IRINOTECAN HYDROCHLORIDE
     Indication: Neuroblastoma
     Dosage: UNK
     Route: 065

REACTIONS (4)
  - Neuroblastoma [Unknown]
  - Malignant neoplasm progression [Unknown]
  - Off label use [Unknown]
  - Off label use [Unknown]
